FAERS Safety Report 4507663-0 (Version None)
Quarter: 2004Q4

REPORT INFORMATION
  Report Type: 
  Country: None (occurrence: None)
  Receive Date: 20041118
  Receipt Date: 20041028
  Transmission Date: 20050328
  Serious: Yes (Other)
  Sender: FDA-Public Use
  Company Number: B0349808A

PATIENT
  Age: 9 Month
  Sex: Female
  Weight: 7.9833 kg

DRUGS (2)
  1. TEMOVATE [Suspect]
     Indication: DERMATITIS DIAPER
     Dosage: TOPICAL/ MONTHS
     Route: 061
  2. ANTIBIOTICS [Concomitant]

REACTIONS (6)
  - BLOOD CORTISOL DECREASED [None]
  - BLOOD CREATININE INCREASED [None]
  - CUSHING'S SYNDROME [None]
  - LABORATORY TEST ABNORMAL [None]
  - PLATELET COUNT INCREASED [None]
  - URINARY TRACT INFECTION [None]
